FAERS Safety Report 21915366 (Version 1)
Quarter: 2023Q1

REPORT INFORMATION
  Report Type: Spontaneous
  Country: US (occurrence: US)
  Receive Date: 20230126
  Receipt Date: 20230126
  Transmission Date: 20230417
  Serious: Yes (Other)
  Sender: FDA-Public Use
  Company Number: US-002147023-NVSC2023US015238

PATIENT
  Age: 53 Year
  Sex: Female

DRUGS (1)
  1. LEQVIO [Suspect]
     Active Substance: INCLISIRAN SODIUM
     Indication: Low density lipoprotein increased
     Dosage: 284 MG, ONE SINGLE DOSE (1.5 MIL)
     Route: 058
     Dates: start: 20221031, end: 20221230

REACTIONS (1)
  - Low density lipoprotein increased [Recovered/Resolved]

NARRATIVE: CASE EVENT DATE: 20221031
